FAERS Safety Report 5204014-3 (Version None)
Quarter: 2007Q1

REPORT INFORMATION
  Report Type: 
  Country: None (occurrence: None)
  Receive Date: 20070110
  Receipt Date: 20051107
  Transmission Date: 20070707
  Serious: No
  Sender: FDA-Public Use
  Company Number: US-BRISTOL-MYERS SQUIBB COMPANY-13072517

PATIENT
  Age: 10 Year
  Sex: Male
  Weight: 54 kg

DRUGS (6)
  1. ABILIFY [Suspect]
     Indication: AGGRESSION
     Dosage: DURATION OF THERAPY:  APPROXIMATELY 2 MONTHS.
     Route: 048
     Dates: start: 20050701, end: 20050801
  2. ABILIFY [Suspect]
     Indication: ANGER
     Dosage: DURATION OF THERAPY:  APPROXIMATELY 2 MONTHS.
     Route: 048
     Dates: start: 20050701, end: 20050801
  3. ABILIFY [Suspect]
     Indication: AUTISM SPECTRUM DISORDER
     Dosage: DURATION OF THERAPY:  APPROXIMATELY 2 MONTHS.
     Route: 048
     Dates: start: 20050701, end: 20050801
  4. LEXAPRO [Concomitant]
     Dosage: DURATION OF THERAPY:  APPROXIMATELY 13 MONTHS.
  5. CONCERTA [Concomitant]
     Dosage: DURATION OF THERAPY:  APPROXIMATELY 13 MONTHS.
  6. TENEX [Concomitant]
     Dosage: DURATION OF THERAPY:  APPROXIMATELY 13 MONTHS.

REACTIONS (1)
  - CHILLS [None]
